FAERS Safety Report 5165300-9 (Version None)
Quarter: 2006Q4

REPORT INFORMATION
  Report Type: 
  Country: None (occurrence: None)
  Receive Date: 20061124
  Receipt Date: 20061116
  Transmission Date: 20070319
  Serious: Yes (Hospitalization, Other)
  Sender: FDA-Public Use
  Company Number: 2006142650

PATIENT
  Age: 47 Year
  Sex: Male

DRUGS (6)
  1. ALPRAZOLAM [Suspect]
     Dosage: 14 MG (2 MG, 7 IN 1 D)
     Dates: start: 20060701, end: 20060723
  2. TERAZOSIN HCL [Concomitant]
  3. ATACAND [Concomitant]
  4. NORVASC [Concomitant]
  5. TENORMIN [Concomitant]
  6. ISOPTIN [Concomitant]

REACTIONS (5)
  - FALL [None]
  - LOSS OF CONSCIOUSNESS [None]
  - MUSCLE SPASMS [None]
  - OVERDOSE [None]
  - WHITE BLOOD CELL COUNT INCREASED [None]
